FAERS Safety Report 6345023-0 (Version None)
Quarter: 2009Q3

REPORT INFORMATION
  Report Type: 
  Country: None (occurrence: None)
  Receive Date: 20090909
  Receipt Date: 20090901
  Transmission Date: 20100115
  Serious: Yes (Hospitalization)
  Sender: FDA-Public Use
  Company Number: US-BIOGENIDEC-2009BI023823

PATIENT
  Age: 61 Year
  Sex: Female

DRUGS (12)
  1. TYSABRI [Suspect]
     Indication: MULTIPLE SCLEROSIS
     Route: 042
     Dates: start: 20080729, end: 20090722
  2. DILAUDID [Concomitant]
     Indication: BACK PAIN
  3. TUSSIONEX [Concomitant]
     Route: 048
  4. OXYCODONE [Concomitant]
     Indication: BACK PAIN
  5. ALBUTEROL [Concomitant]
     Indication: CHRONIC OBSTRUCTIVE PULMONARY DISEASE
     Route: 055
  6. PROAIR HFA [Concomitant]
     Indication: CHRONIC OBSTRUCTIVE PULMONARY DISEASE
     Dosage: DOSE UNIT:2 UNKNOWN
     Route: 055
  7. SPIRIVA [Concomitant]
     Indication: CHRONIC OBSTRUCTIVE PULMONARY DISEASE
     Route: 055
  8. PULMICORT [Concomitant]
     Indication: CHRONIC OBSTRUCTIVE PULMONARY DISEASE
     Route: 055
  9. GABAPENTIN [Concomitant]
  10. CLONAZEPAM [Concomitant]
  11. VERAPAMIL [Concomitant]
  12. RESTORIL [Concomitant]
     Indication: SLEEP DISORDER

REACTIONS (2)
  - BRONCHITIS [None]
  - INFECTIVE EXACERBATION OF CHRONIC OBSTRUCTIVE AIRWAYS DISEASE [None]
